FAERS Safety Report 25048254 (Version 1)
Quarter: 2025Q1

REPORT INFORMATION
  Report Type: Spontaneous
  Country: US (occurrence: US)
  Receive Date: 20250307
  Receipt Date: 20250307
  Transmission Date: 20250408
  Serious: No
  Sender: ROCHE
  Company Number: US-ROCHE-10000210683

PATIENT
  Sex: Male
  Weight: 111.13 kg

DRUGS (6)
  1. XOLAIR [Suspect]
     Active Substance: OMALIZUMAB
     Indication: Urticaria chronic
     Route: 065
     Dates: start: 2023, end: 2023
  2. XOLAIR [Suspect]
     Active Substance: OMALIZUMAB
     Route: 065
  3. DUPIXENT [Concomitant]
     Active Substance: DUPILUMAB
     Indication: Dermatitis
     Dates: start: 202402
  4. CLARITIN [Concomitant]
     Active Substance: LORATADINE
     Dosage: 2 PILLS TWICE DAILY FOR A TOTAL OF 4 PER DAY
     Dates: start: 202306
  5. FAMOTIDINE [Concomitant]
     Active Substance: FAMOTIDINE
     Dosage: 2 PILLS TWICE DAILY FOR A TOTAL OF 4 PER DAY
     Dates: start: 202306
  6. PREDNISONE [Concomitant]
     Active Substance: PREDNISONE
     Dates: start: 202412

REACTIONS (4)
  - Product dose omission issue [Unknown]
  - Urticaria [Not Recovered/Not Resolved]
  - Off label use [Unknown]
  - Dermatitis [Unknown]

NARRATIVE: CASE EVENT DATE: 20230101
